FAERS Safety Report 5023495-1 (Version None)
Quarter: 2006Q2

REPORT INFORMATION
  Report Type: 
  Country: None (occurrence: None)
  Receive Date: 20060606
  Receipt Date: 20060526
  Transmission Date: 20061013
  Serious: Yes (Death, Hospitalization)
  Sender: FDA-Public Use
  Company Number: 2006-01313

PATIENT
  Age: 77 Year
  Sex: Female
  Weight: 54 kg

DRUGS (9)
  1. VELCADE [Suspect]
     Indication: MULTIPLE MYELOMA
     Dosage: 1.83 MG, UNK; INTRAVENOUS
     Route: 042
     Dates: start: 20051202, end: 20051225
  2. POTASSIUM [Concomitant]
  3. DEXAMETHASONE TAB [Concomitant]
  4. GABAPENTIN [Concomitant]
  5. CALCIUM SANDOZ FORTE D (COLECALCIFEROL, CALCIUM GLUCEPTATE, CALCIUM CA [Concomitant]
  6. ACYCLOVIR [Concomitant]
  7. IBUPROFEN [Concomitant]
  8. PARACETAMOL [Concomitant]
  9. EPOETIN BETA [Concomitant]

REACTIONS (2)
  - HYPOKALAEMIA [None]
  - SUDDEN DEATH [None]
